FAERS Safety Report 5285409-9 (Version None)
Quarter: 2007Q1

REPORT INFORMATION
  Report Type: 
  Country: None (occurrence: None)
  Receive Date: 20070328
  Receipt Date: 20070319
  Transmission Date: 20070707
  Serious: Yes (Hospitalization)
  Sender: FDA-Public Use
  Company Number: 2005BI020218

PATIENT
  Age: 62 Year
  Sex: Female

DRUGS (3)
  1. AVONEX [Suspect]
     Indication: MULTIPLE SCLEROSIS
     Dosage: 30 UG;QW;IM
     Route: 030
     Dates: start: 20020918
  2. AVONEX [Suspect]
     Indication: MULTIPLE SCLEROSIS
     Dosage: 30 UG;QW;IM
     Route: 030
  3. AVONEX [Suspect]
     Indication: MULTIPLE SCLEROSIS
     Dosage: 30 UG;QW;IM
     Route: 030

REACTIONS (12)
  - APPENDICECTOMY [None]
  - BACK PAIN [None]
  - BLADDER DISORDER [None]
  - COLON CANCER [None]
  - CONDITION AGGRAVATED [None]
  - FATIGUE [None]
  - HERNIA REPAIR [None]
  - MULTIPLE SCLEROSIS [None]
  - OVARIAN CYST [None]
  - RENAL DISORDER [None]
  - SCAR [None]
  - URINARY TRACT INFECTION [None]
